FAERS Safety Report 7953692 (Version 2)
Quarter: 2014Q2

REPORT INFORMATION
  Report Type: Spontaneous
  Country: JP (occurrence: JP)
  Receive Date: 20110520
  Receipt Date: 20140428
  Transmission Date: 20141212
  Serious: Yes (Life-Threatening)
  Sender: FDA-Public Use
  Company Number: JP-ASTRAZENECA-2011SE30193

PATIENT
  Age: 41 Year
  Sex: Male

DRUGS (2)
  1. CRESTOR [Suspect]
     Dosage: 30 TABLETS
     Route: 048
  2. OTHER 5 [Suspect]

REACTIONS (1)
  - Suicide attempt [Unknown]
